FAERS Safety Report 12095481 (Version 2)
Quarter: 2016Q1

REPORT INFORMATION
  Report Type: Report from Study
  Country: PA (occurrence: PA)
  Receive Date: 20160219
  Receipt Date: 20160304
  Transmission Date: 20160526
  Serious: Yes (Hospitalization)
  Sender: FDA-Public Use
  Company Number: PHHY2016PA021175

PATIENT
  Age: 35 Year
  Sex: Female

DRUGS (1)
  1. EXJADE [Suspect]
     Active Substance: DEFERASIROX
     Indication: PRODUCT USED FOR UNKNOWN INDICATION
     Route: 048

REACTIONS (12)
  - Weight decreased [Unknown]
  - Pyrexia [Unknown]
  - Liver disorder [Unknown]
  - Infection [Unknown]
  - Serum ferritin increased [Recovering/Resolving]
  - Agitation [Unknown]
  - Pulmonary oedema [Unknown]
  - Lymphadenopathy [Unknown]
  - Dyspnoea [Unknown]
  - Haemoglobin decreased [Unknown]
  - Cardiac disorder [Unknown]
  - Peripheral swelling [Unknown]
